FAERS Safety Report 5005940-0 (Version None)
Quarter: 2006Q2

REPORT INFORMATION
  Report Type: 
  Country: None (occurrence: None)
  Receive Date: 20060517
  Receipt Date: 20060517
  Transmission Date: 20061013
  Serious: Yes (Other)
  Sender: FDA-Public Use
  Company Number: None

PATIENT
  Sex: Female
  Weight: 63.5036 kg

DRUGS (1)
  1. FOSAMAX [Suspect]
     Indication: OSTEOPOROSIS
     Dosage: 75 MG. WEEKLY PO
     Route: 048
     Dates: start: 20030401, end: 20051201

REACTIONS (3)
  - JAW DISORDER [None]
  - LOW TURNOVER OSTEOPATHY [None]
  - TOOTH LOSS [None]
